FAERS Safety Report 24436081 (Version 2)
Quarter: 2024Q4

REPORT INFORMATION
  Report Type: Report from Study
  Country: US (occurrence: US)
  Receive Date: 20241015
  Receipt Date: 20241115
  Transmission Date: 20250114
  Serious: Yes (Other)
  Sender: MALLINCKRODT
  Company Number: US-MALLINCKRODT-MNK202405736

PATIENT
  Sex: Female

DRUGS (1)
  1. CORTICOTROPIN [Suspect]
     Active Substance: CORTICOTROPIN
     Indication: Proteinuria
     Dosage: 80 UNITS

REACTIONS (4)
  - Fall [Unknown]
  - Upper limb fracture [Unknown]
  - Dizziness [Unknown]
  - Procedural pain [Unknown]
